FAERS Safety Report 12763686 (Version 2)
Quarter: 2016Q3

REPORT INFORMATION
  Report Type: Report from Study
  Country: GB (occurrence: GB)
  Receive Date: 20160920
  Receipt Date: 20160928
  Transmission Date: 20161109
  Serious: Yes (Hospitalization, Other)
  Sender: FDA-Public Use
  Company Number: GB-PFIZER INC-2016439951

PATIENT
  Age: 57 Year
  Sex: Female
  Weight: 56.8 kg

DRUGS (3)
  1. AZD2014 [Suspect]
     Active Substance: INVESTIGATIONAL PRODUCT
     Indication: OESTROGEN RECEPTOR POSITIVE BREAST CANCER
     Dosage: CYCLE 1
     Route: 048
     Dates: start: 20160906
  2. PALBOCICLIB [Suspect]
     Active Substance: PALBOCICLIB
     Indication: OESTROGEN RECEPTOR POSITIVE BREAST CANCER
     Dosage: 75 MG, CYCLIC (CYCLE 1)
     Route: 048
     Dates: start: 20160906
  3. FULVESTRANT [Suspect]
     Active Substance: FULVESTRANT
     Indication: OESTROGEN RECEPTOR POSITIVE BREAST CANCER
     Dosage: 500 MG, CYCLIC (CYCLE 1)
     Route: 030
     Dates: start: 20160906

REACTIONS (1)
  - Chest discomfort [Unknown]

NARRATIVE: CASE EVENT DATE: 20160906
